FAERS Safety Report 21672741 (Version 2)
Quarter: 2023Q1

REPORT INFORMATION
  Report Type: Report from Study
  Country: MX (occurrence: MX)
  Receive Date: 20221202
  Receipt Date: 20230106
  Transmission Date: 20230417
  Serious: Yes (Disabling)
  Sender: FDA-Public Use
  Company Number: MX-ABBVIE-4219890

PATIENT
  Age: 68 Year
  Sex: Female

DRUGS (1)
  1. HUMIRA [Suspect]
     Active Substance: ADALIMUMAB
     Indication: Rheumatoid arthritis
     Route: 058
     Dates: start: 20221019, end: 20221219

REACTIONS (6)
  - Muscle fatigue [Recovering/Resolving]
  - Disability [Unknown]
  - Vertigo [Not Recovered/Not Resolved]
  - Coccydynia [Unknown]
  - Drug ineffective [Not Recovered/Not Resolved]
  - Pain [Recovering/Resolving]

NARRATIVE: CASE EVENT DATE: 20221001
